FAERS Safety Report 10012654 (Version 1)
Quarter: 2014Q1

REPORT INFORMATION
  Report Type: Spontaneous
  Country: GB (occurrence: GB)
  Receive Date: 20140314
  Receipt Date: 20140314
  Transmission Date: 20141002
  Serious: Yes (Death)
  Sender: FDA-Public Use
  Company Number: GB-BANPHARM-20142386

PATIENT
  Age: 13 Year
  Sex: Female
  Weight: 50 kg

DRUGS (3)
  1. IBUPROFEN UNKNOWN PRODUCT [Suspect]
     Indication: HEADACHE
  2. PARACETAMOL [Concomitant]
  3. PIZOTIFEN [Concomitant]
     Indication: HYPOAESTHESIA

REACTIONS (3)
  - Gastric haemorrhage [Fatal]
  - Haemorrhagic erosive gastritis [Not Recovered/Not Resolved]
  - Pulmonary haemorrhage [Not Recovered/Not Resolved]
